FAERS Safety Report 9228631 (Version 2)
Quarter: 2013Q2

REPORT INFORMATION
  Report Type: Report from Study
  Country: GB (occurrence: GB)
  Receive Date: 20130412
  Receipt Date: 20130614
  Transmission Date: 20140414
  Serious: Yes (Death, Hospitalization, Disabling, Other)
  Sender: FDA-Public Use
  Company Number: GB-ROCHE-1211426

PATIENT
  Sex: 0

DRUGS (2)
  1. ALTEPLASE [Suspect]
     Indication: PERIPHERAL ISCHAEMIA
     Dosage: 5 MG BOLUS PRIOR TO INFUSION AT  RATE OF 50 ML/H (1 MG/H)
     Route: 013
  2. HEPARIN [Suspect]
     Indication: PERIPHERAL ISCHAEMIA
     Route: 065

REACTIONS (5)
  - Death [Fatal]
  - Drug ineffective [Unknown]
  - Amputation [Unknown]
  - Haemorrhage [Unknown]
  - Haematoma [Unknown]
